FAERS Safety Report 13795636 (Version 1)
Quarter: 2017Q3

REPORT INFORMATION
  Report Type: Spontaneous
  Country: FR (occurrence: FR)
  Receive Date: 20170726
  Receipt Date: 20170726
  Transmission Date: 20171127
  Serious: Yes (Hospitalization)
  Sender: FDA-Public Use
  Company Number: FR-ROCHE-1965950

PATIENT
  Age: 64 Year
  Sex: Female

DRUGS (5)
  1. CARBOPLATINE [Suspect]
     Active Substance: CARBOPLATIN
     Indication: OVARIAN EPITHELIAL CANCER
     Route: 042
     Dates: start: 201106, end: 2014
  2. LYNPARZA [Suspect]
     Active Substance: OLAPARIB
     Indication: OVARIAN EPITHELIAL CANCER
     Route: 048
     Dates: start: 201602, end: 201703
  3. PACLITAXEL. [Suspect]
     Active Substance: PACLITAXEL
     Indication: OVARIAN EPITHELIAL CANCER
     Route: 042
     Dates: start: 201106, end: 201201
  4. GEMZAR [Suspect]
     Active Substance: GEMCITABINE HYDROCHLORIDE
     Indication: OVARIAN EPITHELIAL CANCER
     Route: 042
     Dates: start: 201405, end: 201603
  5. AVASTIN [Suspect]
     Active Substance: BEVACIZUMAB
     Indication: OVARIAN EPITHELIAL CANCER
     Route: 042
     Dates: start: 201106, end: 201303

REACTIONS (1)
  - Acute myeloid leukaemia [Unknown]

NARRATIVE: CASE EVENT DATE: 20170310
